FAERS Safety Report 15454522 (Version 4)
Quarter: 2018Q4

REPORT INFORMATION
  Report Type: Spontaneous
  Country: US (occurrence: US)
  Receive Date: 20181002
  Receipt Date: 20181217
  Transmission Date: 20190204
  Serious: Yes (Hospitalization, Other)
  Sender: FDA-Public Use
  Company Number: US-PFIZER INC-2018392344

PATIENT
  Age: 59 Year
  Sex: Male
  Weight: 76 kg

DRUGS (5)
  1. LYRICA [Suspect]
     Active Substance: PREGABALIN
     Indication: HYPOAESTHESIA
     Dosage: 50 MG, 3X/DAY
     Route: 048
     Dates: start: 20180924
  2. TIZANIDINE. [Concomitant]
     Active Substance: TIZANIDINE
     Dosage: 4 MG, UNK
     Dates: start: 20180924
  3. LYRICA [Suspect]
     Active Substance: PREGABALIN
     Indication: PAIN
     Dosage: 50 MG, SINGLE (LAST NIGHT)
     Route: 048
     Dates: start: 20180925, end: 20180925
  4. ASPIRIN [ACETYLSALICYLIC ACID] [Concomitant]
     Active Substance: ASPIRIN
     Dosage: UNK
  5. LYRICA [Suspect]
     Active Substance: PREGABALIN
     Indication: NECK PAIN

REACTIONS (8)
  - Abnormal behaviour [Not Recovered/Not Resolved]
  - Psychotic disorder [Unknown]
  - Agitation [Unknown]
  - Anger [Unknown]
  - Myocardial infarction [Unknown]
  - Amnesia [Not Recovered/Not Resolved]
  - Fatigue [Not Recovered/Not Resolved]
  - Pulmonary mass [Unknown]

NARRATIVE: CASE EVENT DATE: 2018
